FAERS Safety Report 7225669-8 (Version None)
Quarter: 2011Q1

REPORT INFORMATION
  Report Type: 
  Country: None (occurrence: None)
  Receive Date: 20110113
  Receipt Date: 20110105
  Transmission Date: 20110831
  Serious: Yes (Hospitalization, Other)
  Sender: FDA-Public Use
  Company Number: DZ-SANOFI-AVENTIS-2011SA001508

PATIENT
  Age: 77 Year
  Sex: Male
  Weight: 83 kg

DRUGS (4)
  1. INSULIN GLARGINE [Suspect]
     Route: 058
     Dates: start: 20011114
  2. CORDARONE [Suspect]
     Indication: ARRHYTHMIA
     Route: 048
     Dates: start: 20080101
  3. ASPEGIC 1000 [Suspect]
     Indication: HYPERTENSION
     Route: 048
     Dates: start: 20080101
  4. CAPTOPRIL [Suspect]
     Indication: HYPERTENSION
     Route: 048
     Dates: start: 20080101

REACTIONS (1)
  - RENAL FAILURE [None]
